FAERS Safety Report 5352442-8 (Version None)
Quarter: 2007Q2

REPORT INFORMATION
  Report Type: 
  Country: None (occurrence: None)
  Receive Date: 20070611
  Receipt Date: 20070606
  Transmission Date: 20071010
  Serious: Yes (Hospitalization)
  Sender: FDA-Public Use
  Company Number: A0654411A

PATIENT
  Age: 36 Year
  Sex: Female

DRUGS (4)
  1. AVANDIA [Suspect]
     Indication: DIABETES MELLITUS INSULIN-DEPENDENT
     Dosage: 4MG PER DAY
     Route: 048
     Dates: start: 20060411, end: 20060501
  2. INSULIN [Concomitant]
  3. METFORMIN HCL [Concomitant]
  4. ALLERGY MEDICATION [Concomitant]

REACTIONS (2)
  - URINARY TRACT INFECTION [None]
  - VOMITING [None]
